FAERS Safety Report 18415711 (Version 1)
Quarter: 2020Q4

REPORT INFORMATION
  Report Type: Spontaneous
  Country: CN (occurrence: CN)
  Receive Date: 20201022
  Receipt Date: 20201022
  Transmission Date: 20210114
  Serious: Yes (Life-Threatening, Hospitalization)
  Sender: FDA-Public Use
  Company Number: CN-PFIZER INC-2020407508

PATIENT
  Age: 76 Year
  Sex: Female
  Weight: 47 kg

DRUGS (17)
  1. COMPOUND SULFAMETHOXAZOLE [SULFAMETHOXAZOLE] [Suspect]
     Active Substance: SULFAMETHOXAZOLE
     Indication: PNEUMONIA
     Dosage: 0.96 G, 4X/DAY
     Route: 048
     Dates: start: 20200919, end: 20200924
  2. GANCICLOVIR. [Suspect]
     Active Substance: GANCICLOVIR
     Indication: INTERSTITIAL LUNG DISEASE
  3. HYDROXYCHLOROQUINE SULFATE. [Suspect]
     Active Substance: HYDROXYCHLOROQUINE SULFATE
     Indication: PNEUMONIA
     Dosage: 0.2 G, 2X/DAY
     Route: 048
     Dates: start: 20200920, end: 20201005
  4. PIPERACILLIN/TAZOBACTAM [Suspect]
     Active Substance: PIPERACILLIN SODIUM\TAZOBACTAM SODIUM
     Indication: ANTI-INFECTIVE THERAPY
     Dosage: UNK
     Dates: start: 20200925, end: 20200930
  5. COMPOUND SULFAMETHOXAZOLE [SULFAMETHOXAZOLE] [Suspect]
     Active Substance: SULFAMETHOXAZOLE
     Indication: INTERSTITIAL LUNG DISEASE
  6. HYDROXYCHLOROQUINE SULFATE. [Suspect]
     Active Substance: HYDROXYCHLOROQUINE SULFATE
     Indication: INTERSTITIAL LUNG DISEASE
  7. COMPOUND SULFAMETHOXAZOLE [SULFAMETHOXAZOLE] [Suspect]
     Active Substance: SULFAMETHOXAZOLE
     Indication: RHEUMATOID ARTHRITIS
  8. GANCICLOVIR. [Suspect]
     Active Substance: GANCICLOVIR
     Indication: PNEUMONIA
     Dosage: 0.25 G, 2X/DAY
     Route: 041
     Dates: start: 20200919, end: 20200925
  9. METHOTREXATE. [Suspect]
     Active Substance: METHOTREXATE
     Indication: PNEUMONIA
     Dosage: 10 MG, WEEKLY
     Route: 048
     Dates: start: 20200920, end: 20201005
  10. HYDROXYCHLOROQUINE SULFATE. [Suspect]
     Active Substance: HYDROXYCHLOROQUINE SULFATE
     Indication: RHEUMATOID ARTHRITIS
  11. SODIUM CHLORIDE 0.9% [Concomitant]
     Active Substance: SODIUM CHLORIDE
     Indication: VEHICLE SOLUTION USE
     Dosage: 100 ML, 1X/DAY
     Route: 041
     Dates: start: 20200919, end: 20200924
  12. METHOTREXATE. [Suspect]
     Active Substance: METHOTREXATE
     Indication: RHEUMATOID ARTHRITIS
  13. LINEZOLID. [Suspect]
     Active Substance: LINEZOLID
     Indication: PNEUMONIA
     Dosage: 0.6 G, 2X/DAY
     Route: 041
     Dates: start: 20200919, end: 20200926
  14. GANCICLOVIR. [Suspect]
     Active Substance: GANCICLOVIR
     Indication: RHEUMATOID ARTHRITIS
  15. METHOTREXATE. [Suspect]
     Active Substance: METHOTREXATE
     Indication: INTERSTITIAL LUNG DISEASE
  16. SODIUM CHLORIDE 0.9% [Concomitant]
     Active Substance: SODIUM CHLORIDE
     Dosage: 250 ML, 2X/DAY
     Route: 041
     Dates: start: 20200919, end: 20200925
  17. MICAFUNGIN SODIUM [Suspect]
     Active Substance: MICAFUNGIN SODIUM
     Indication: PNEUMONIA
     Dosage: 100 MG, 1X/DAY
     Route: 041
     Dates: start: 20200919, end: 20200924

REACTIONS (6)
  - Petechiae [Recovering/Resolving]
  - Haemorrhage subcutaneous [Recovering/Resolving]
  - Platelet count decreased [Recovering/Resolving]
  - Hepatic function abnormal [Recovering/Resolving]
  - Haemoglobin decreased [Recovering/Resolving]
  - Epistaxis [Recovering/Resolving]

NARRATIVE: CASE EVENT DATE: 20200922
